FAERS Safety Report 6785778-4 (Version None)
Quarter: 2010Q2

REPORT INFORMATION
  Report Type: 
  Country: None (occurrence: None)
  Receive Date: 20100622
  Receipt Date: 20100622
  Transmission Date: 20101027
  Serious: Yes (Death)
  Sender: FDA-Public Use
  Company Number: None

PATIENT
  Age: 52 Year
  Sex: Male
  Weight: 75.2971 kg

DRUGS (2)
  1. BENICAR HCT [Suspect]
     Indication: HYPERTENSION
     Dosage: 40/12.5 QD IN AM P.O. (MORNING)
     Route: 048
     Dates: start: 20090908
  2. CRESTOR [Suspect]
     Indication: HYPERLIPIDAEMIA
     Dosage: 5 MG QD IN AM PO (MORNING)
     Route: 048
     Dates: start: 20091020

REACTIONS (3)
  - CARDIO-RESPIRATORY ARREST [None]
  - FALL [None]
  - LOSS OF CONSCIOUSNESS [None]
